FAERS Safety Report 14033179 (Version 3)
Quarter: 2017Q4

REPORT INFORMATION
  Report Type: Spontaneous
  Country: JP (occurrence: JP)
  Receive Date: 20171002
  Receipt Date: 20171128
  Transmission Date: 20180321
  Serious: Yes (Hospitalization)
  Sender: FDA-Public Use
  Company Number: JP-OTSUKA-2017_019752

PATIENT
  Age: 58 Year
  Sex: Female

DRUGS (7)
  1. SAMSCA 30 MG [Suspect]
     Active Substance: TOLVAPTAN
     Dosage: 30MG/DAY
     Route: 048
     Dates: start: 20170705, end: 20170720
  2. SAMSCA [Suspect]
     Active Substance: TOLVAPTAN
     Indication: CONGENITAL CYSTIC KIDNEY DISEASE
     Dosage: 30MG/DAY
     Route: 048
     Dates: start: 20170705, end: 20170720
  3. MAGMITT [Concomitant]
     Active Substance: MAGNESIUM OXIDE
     Indication: PRODUCT USED FOR UNKNOWN INDICATION
     Dosage: UNK
     Route: 048
  4. ENALAPRIL [Concomitant]
     Active Substance: ENALAPRIL
     Indication: PRODUCT USED FOR UNKNOWN INDICATION
     Dosage: 1 DF(5 MG), QD
     Route: 048
  5. AMLODIPINE [Concomitant]
     Active Substance: AMLODIPINE BESYLATE
     Indication: PRODUCT USED FOR UNKNOWN INDICATION
     Dosage: 2 DF(5MG X2), QD
     Route: 048
  6. SAMSCA 30 MG [Suspect]
     Active Substance: TOLVAPTAN
     Indication: CONGENITAL CYSTIC KIDNEY DISEASE
     Dosage: 120MG/DAY
     Route: 048
     Dates: start: 20170825, end: 20170906
  7. SAMSCA 30 MG [Suspect]
     Active Substance: TOLVAPTAN
     Dosage: 90MG/DAY
     Route: 048
     Dates: start: 20170721, end: 20170824

REACTIONS (1)
  - Hepatic function abnormal [Recovered/Resolved]

NARRATIVE: CASE EVENT DATE: 20170906
